FAERS Safety Report 21194846 (Version 5)
Quarter: 2022Q4

REPORT INFORMATION
  Report Type: Spontaneous
  Country: GB (occurrence: GB)
  Receive Date: 20220810
  Receipt Date: 20221222
  Transmission Date: 20230113
  Serious: Yes (Hospitalization, Other)
  Sender: FDA-Public Use
  Company Number: GB-NOVARTISPH-NVSC2022GB178761

PATIENT
  Age: 76 Year
  Sex: Male

DRUGS (4)
  1. EVEROLIMUS [Suspect]
     Active Substance: EVEROLIMUS
     Indication: Product used for unknown indication
     Dosage: UNK (DOSE NOT REPORTED)
     Route: 065
  2. LANREOTIDE ACETATE [Suspect]
     Active Substance: LANREOTIDE ACETATE
     Indication: Neuroendocrine tumour
     Dosage: 120 MG, 21D, (120MG/0.5ML, 20 SECONDS INTO LEFT UPPER OUTER BUTTOCK)
     Route: 058
  3. LANREOTIDE ACETATE [Suspect]
     Active Substance: LANREOTIDE ACETATE
     Dosage: 120 MG, Q3W
     Route: 058
     Dates: start: 20220607
  4. LANREOTIDE ACETATE [Suspect]
     Active Substance: LANREOTIDE ACETATE
     Dosage: STRENGTH: 120MG/0.5ML
     Route: 058

REACTIONS (18)
  - Urosepsis [Unknown]
  - Oedema [Not Recovered/Not Resolved]
  - Anaphylactic reaction [Unknown]
  - Ascites [Not Recovered/Not Resolved]
  - Mouth ulceration [Unknown]
  - Dyspnoea [Unknown]
  - Oxygen saturation decreased [Unknown]
  - Feeling hot [Unknown]
  - Erythema [Unknown]
  - Oedema peripheral [Unknown]
  - Oedema peripheral [Unknown]
  - Seasonal allergy [Unknown]
  - Diarrhoea [Not Recovered/Not Resolved]
  - Oedema peripheral [Unknown]
  - Fatigue [Unknown]
  - Product temperature excursion issue [Unknown]
  - Off label use [Unknown]
  - Off label use [Unknown]

NARRATIVE: CASE EVENT DATE: 20220824
